FAERS Safety Report 8061984-6 (Version None)
Quarter: 2012Q1

REPORT INFORMATION
  Report Type: 
  Country: None (occurrence: None)
  Receive Date: 20120123
  Receipt Date: 20120112
  Transmission Date: 20120608
  Serious: Yes (Hospitalization)
  Sender: FDA-Public Use
  Company Number: US-BAYER-2011-033908

PATIENT
  Age: 39 Year
  Sex: Female
  Weight: 106 kg

DRUGS (8)
  1. PREVACID [Concomitant]
  2. SUMATRIPTAN [Concomitant]
     Indication: MIGRAINE
     Dosage: UNK
     Dates: start: 20090101
  3. NSAID'S [Concomitant]
     Dosage: UNK UNK, PRN
  4. TAGAMET [Concomitant]
  5. MULTI-VITAMINS [Concomitant]
     Dosage: UNK, QD
  6. ACETAMINOPHEN [Concomitant]
  7. YAZ [Suspect]
     Indication: ORAL CONTRACEPTION
     Dosage: UNK
     Dates: start: 20070101, end: 20090614
  8. MOTRIN [Concomitant]

REACTIONS (7)
  - HERNIA [None]
  - GALLBLADDER INJURY [None]
  - PULMONARY EMBOLISM [None]
  - CHOLECYSTITIS ACUTE [None]
  - DEEP VEIN THROMBOSIS [None]
  - PAIN [None]
  - INJURY [None]
